FAERS Safety Report 16684528 (Version 1)
Quarter: 2019Q3

REPORT INFORMATION
  Report Type: Spontaneous
  Country: US (occurrence: US)
  Receive Date: 20190808
  Receipt Date: 20190808
  Transmission Date: 20191004
  Serious: No
  Sender: FDA-Public Use
  Company Number: US-EMD SERONO-9108311

PATIENT
  Sex: Female

DRUGS (1)
  1. MAVENCLAD [Suspect]
     Active Substance: CLADRIBINE
     Indication: MULTIPLE SCLEROSIS
     Dosage: ONE TABLET PER DAY FOR 5 DAYS
     Dates: start: 20190719, end: 20190726

REACTIONS (4)
  - Confusional state [Unknown]
  - Urinary incontinence [Unknown]
  - Mobility decreased [Unknown]
  - Product administration error [Unknown]

NARRATIVE: CASE EVENT DATE: 201907
